FAERS Safety Report 12479590 (Version 1)
Quarter: 2016Q2

REPORT INFORMATION
  Report Type: Report from Study
  Country: US (occurrence: US)
  Receive Date: 20160620
  Receipt Date: 20160620
  Transmission Date: 20160815
  Serious: No
  Sender: FDA-Public Use
  Company Number: US-AMGEN-USASL2016077257

PATIENT
  Age: 46 Year
  Sex: Male

DRUGS (1)
  1. ENBREL [Suspect]
     Active Substance: ETANERCEPT
     Indication: PRODUCT USED FOR UNKNOWN INDICATION
     Dosage: UNK
     Route: 065

REACTIONS (10)
  - Pyrexia [Unknown]
  - Feeling abnormal [Unknown]
  - Somnolence [Unknown]
  - Insomnia [Unknown]
  - Activities of daily living impaired [Unknown]
  - Vomiting [Unknown]
  - Impaired work ability [Unknown]
  - Headache [Unknown]
  - Cough [Unknown]
  - Abdominal discomfort [Unknown]
